FAERS Safety Report 6962443-1 (Version None)
Quarter: 2010Q3

REPORT INFORMATION
  Report Type: 
  Country: None (occurrence: None)
  Receive Date: 20100902
  Receipt Date: 20100824
  Transmission Date: 20110219
  Serious: Yes (Other)
  Sender: FDA-Public Use
  Company Number: DE-ASTRAZENECA-2010SE14668

PATIENT

DRUGS (1)
  1. PROPOFOL [Suspect]
     Indication: INDUCTION OF ANAESTHESIA
     Route: 042

REACTIONS (4)
  - DRUG ADMINISTRATION ERROR [None]
  - LIVER DISORDER [None]
  - RENAL DISORDER [None]
  - SEPSIS [None]
